FAERS Safety Report 23736037 (Version 2)
Quarter: 2024Q2

REPORT INFORMATION
  Report Type: Report from Study
  Country: GR (occurrence: GR)
  Receive Date: 20240412
  Receipt Date: 20240429
  Transmission Date: 20240715
  Serious: Yes (Death, Life-Threatening, Hospitalization, Other)
  Sender: FDA-Public Use
  Company Number: GR-ABBVIE-5715940

PATIENT
  Age: 79 Year
  Sex: Female
  Weight: 80 kg

DRUGS (2)
  1. VENETOCLAX [Suspect]
     Active Substance: VENETOCLAX
     Indication: Acute myeloid leukaemia
     Route: 048
     Dates: start: 20221122, end: 20230817
  2. AZACITIDINE [Suspect]
     Active Substance: AZACITIDINE
     Indication: Acute myeloid leukaemia
     Route: 058
     Dates: start: 20221122, end: 20230813

REACTIONS (10)
  - Colitis [Fatal]
  - Bacteraemia [Not Recovered/Not Resolved]
  - Pyrexia [Not Recovered/Not Resolved]
  - Abdominal pain [Not Recovered/Not Resolved]
  - Pleural effusion [Not Recovered/Not Resolved]
  - Multiple organ dysfunction syndrome [Fatal]
  - Pneumonia klebsiella [Not Recovered/Not Resolved]
  - Sepsis [Fatal]
  - Escherichia infection [Not Recovered/Not Resolved]
  - Neutropenia [Fatal]

NARRATIVE: CASE EVENT DATE: 20230903
